FAERS Safety Report 24436564 (Version 1)
Quarter: 2024Q4

REPORT INFORMATION
  Report Type: Spontaneous
  Country: FR (occurrence: FR)
  Receive Date: 20241015
  Receipt Date: 20241015
  Transmission Date: 20250114
  Serious: Yes (Hospitalization)
  Sender: RANBAXY
  Company Number: FR-SUN PHARMACEUTICAL INDUSTRIES LTD-2024RR-473033

PATIENT
  Age: 48 Year
  Sex: Female

DRUGS (2)
  1. VALACYCLOVIR [Suspect]
     Active Substance: VALACYCLOVIR HYDROCHLORIDE
     Indication: Vestibular neuronitis
     Dosage: 1000 MG X3/D
     Route: 048
     Dates: start: 20240716, end: 20240717
  2. ACYCLOVIR [Suspect]
     Active Substance: ACYCLOVIR
     Indication: Vestibular neuronitis
     Dosage: 750 MILLIGRAM, TID
     Route: 040
     Dates: start: 20240715, end: 20240716

REACTIONS (2)
  - Hepatic cytolysis [Recovering/Resolving]
  - Acute kidney injury [Recovered/Resolved]

NARRATIVE: CASE EVENT DATE: 20240717
